FAERS Safety Report 10366012 (Version 1)
Quarter: 2014Q3

REPORT INFORMATION
  Report Type: Spontaneous
  Country: US (occurrence: US)
  Receive Date: 20140806
  Receipt Date: 20140806
  Transmission Date: 20150326
  Serious: Yes (Life-Threatening, Other)
  Sender: FDA-Public Use
  Company Number: US-ACTAVIS-2014-16741

PATIENT
  Age: 18 Day
  Sex: Male
  Weight: 3.5 kg

DRUGS (3)
  1. FUROSEMIDE (WATSON LABORATORIES) [Interacting]
     Active Substance: FUROSEMIDE
     Indication: DIURETIC THERAPY
     Dosage: UNK
     Route: 065
  2. ENALAPRIL (WATSON LABORATORIES) [Suspect]
     Active Substance: ENALAPRIL
     Indication: INCREASED VENTRICULAR AFTERLOAD
     Dosage: 0.05 MG/KG, DAILY
     Route: 048
  3. ALDACTONE [Interacting]
     Active Substance: SPIRONOLACTONE
     Indication: DIURETIC THERAPY
     Dosage: UNK
     Route: 065

REACTIONS (5)
  - Off label use [Recovered/Resolved]
  - Renal failure acute [Recovered/Resolved]
  - Renal ischaemia [Recovered/Resolved]
  - Hypotension [Recovered/Resolved]
  - Drug interaction [Recovered/Resolved]
